FAERS Safety Report 8436912-1 (Version None)
Quarter: 2012Q2

REPORT INFORMATION
  Report Type: 
  Country: None (occurrence: None)
  Receive Date: 20120611
  Receipt Date: 20120611
  Transmission Date: 20120825
  Serious: Yes (Life-Threatening, Hospitalization)
  Sender: FDA-Public Use
  Company Number: None

PATIENT
  Age: 35 Year
  Sex: Female
  Weight: 97.977 kg

DRUGS (1)
  1. LAMICTAL [Suspect]
     Indication: CONVULSION
     Dosage: 50 MG 2X DAILY PO
     Route: 048
     Dates: start: 20120515, end: 20120604

REACTIONS (4)
  - RASH [None]
  - URTICARIA [None]
  - EYE DISORDER [None]
  - PHARYNGEAL DISORDER [None]
